FAERS Safety Report 6086726-5 (Version None)
Quarter: 2009Q1

REPORT INFORMATION
  Report Type: 
  Country: None (occurrence: None)
  Receive Date: 20090217
  Receipt Date: 20090202
  Transmission Date: 20090719
  Serious: Yes (Death)
  Sender: FDA-Public Use
  Company Number: CHPA2009US01656

PATIENT
  Age: 19 Year
  Sex: Male

DRUGS (5)
  1. DEXTROMETHORPHAN HYDROBROMIDE (NCH) (DEXTROMETHORPHAN HYDROBROMIDE) [Suspect]
     Dosage: ORAL
     Route: 048
  2. QUETIAPINE FUMARATE [Suspect]
     Dosage: ORAL
     Route: 048
  3. SERTRALINE [Suspect]
     Dosage: ORAL
     Route: 048
  4. FLUOXETINE [Suspect]
     Dosage: ORAL
     Route: 048
  5. DRUG THERAPY NOS (DRUG THERAPY NOS) [Suspect]
     Dosage: ORAL
     Route: 048

REACTIONS (1)
  - DEATH [None]
